FAERS Safety Report 4531880-7 (Version None)
Quarter: 2004Q4

REPORT INFORMATION
  Report Type: 
  Country: None (occurrence: None)
  Receive Date: 20041220
  Receipt Date: 20030203
  Transmission Date: 20050328
  Serious: No
  Sender: FDA-Public Use
  Company Number: US-GLAXOSMITHKLINE-A0395025A

PATIENT
  Age: 45 Year
  Sex: Female

DRUGS (3)
  1. TRIZIVIR [Suspect]
     Indication: HIV INFECTION
     Dosage: 1TAB TWICE PER DAY
     Route: 048
  2. PREVACID [Concomitant]
     Indication: ILL-DEFINED DISORDER
  3. VALTREX [Concomitant]
     Indication: ILL-DEFINED DISORDER

REACTIONS (5)
  - DRUG INEFFECTIVE [None]
  - DRUG RESISTANCE [None]
  - PHARMACEUTICAL PRODUCT COMPLAINT [None]
  - VIRAL LOAD INCREASED [None]
  - WHITE BLOOD CELL COUNT DECREASED [None]
